FAERS Safety Report 6472699-X (Version None)
Quarter: 2009Q4

REPORT INFORMATION
  Report Type: 
  Country: None (occurrence: None)
  Receive Date: 20091203
  Receipt Date: 20081211
  Transmission Date: 20100525
  Serious: No
  Sender: FDA-Public Use
  Company Number: US-AMGEN-KDL323612

PATIENT
  Sex: Male
  Weight: 96.2 kg

DRUGS (1)
  1. ENBREL [Suspect]
     Indication: PSORIASIS
     Route: 058
     Dates: start: 20081016

REACTIONS (5)
  - BACK PAIN [None]
  - FATIGUE [None]
  - HYPOAESTHESIA [None]
  - NERVOUSNESS [None]
  - TREMOR [None]
